FAERS Safety Report 4879265-8 (Version None)
Quarter: 2006Q1

REPORT INFORMATION
  Report Type: 
  Country: None (occurrence: None)
  Receive Date: 20060112
  Receipt Date: 20050824
  Transmission Date: 20060701
  Serious: Yes (Hospitalization, Disabling, Other)
  Sender: FDA-Public Use
  Company Number: US-MERCK-0508USA04251

PATIENT
  Age: 57 Year
  Sex: Male
  Weight: 110 kg

DRUGS (7)
  1. VIOXX [Suspect]
     Indication: PAIN
     Route: 048
     Dates: start: 20010724, end: 20040901
  2. VIOXX [Suspect]
     Route: 048
  3. VIOXX [Suspect]
     Indication: ARTHRITIS
     Route: 048
     Dates: start: 20010724, end: 20040901
  4. VIOXX [Suspect]
     Route: 048
  5. PRAVACHOL [Concomitant]
     Route: 048
  6. NAPROSYN [Concomitant]
     Route: 048
  7. ACETAMINOPHEN [Concomitant]
     Route: 065

REACTIONS (9)
  - ABDOMINAL HERNIA [None]
  - B-CELL LYMPHOMA RECURRENT [None]
  - BRADYCARDIA [None]
  - CORONARY ARTERY DISEASE [None]
  - ELECTROCARDIOGRAM ABNORMAL [None]
  - HYPERLIPIDAEMIA [None]
  - MYOCARDIAL INFARCTION [None]
  - OSTEOARTHRITIS [None]
  - VASCULAR BYPASS GRAFT [None]
